FAERS Safety Report 17346633 (Version 1)
Quarter: 2020Q1

REPORT INFORMATION
  Report Type: Report from Study
  Country: US (occurrence: US)
  Receive Date: 20200129
  Receipt Date: 20200129
  Transmission Date: 20200409
  Serious: No
  Sender: FDA-Public Use
  Company Number: US-EXELIXIS-CABO-19023199

PATIENT
  Sex: Male

DRUGS (16)
  1. PRILOSEC [Concomitant]
     Active Substance: OMEPRAZOLE MAGNESIUM
  2. LORAZEPAM. [Concomitant]
     Active Substance: LORAZEPAM
  3. IRON [Concomitant]
     Active Substance: IRON
  4. ALLOPURINOL. [Concomitant]
     Active Substance: ALLOPURINOL
  5. CLARITIN [Concomitant]
     Active Substance: LORATADINE
  6. LOSARTAN. [Concomitant]
     Active Substance: LOSARTAN
  7. VITAMIN D [Concomitant]
     Active Substance: VITAMIN D NOS
  8. VENTOLIN [Concomitant]
     Active Substance: ALBUTEROL SULFATE
  9. CABOMETYX [Suspect]
     Active Substance: CABOZANTINIB S-MALATE
     Indication: RENAL CANCER
     Dosage: 60 MG, QD
     Route: 048
     Dates: start: 20181221
  10. NORVASC [Concomitant]
     Active Substance: AMLODIPINE BESYLATE
  11. LIPITOR [Concomitant]
     Active Substance: ATORVASTATIN CALCIUM
  12. LASIX [Concomitant]
     Active Substance: FUROSEMIDE
  13. FLONASE [Concomitant]
     Active Substance: FLUTICASONE PROPIONATE
  14. ARANESP [Concomitant]
     Active Substance: DARBEPOETIN ALFA
  15. LEVEMIR [Concomitant]
     Active Substance: INSULIN DETEMIR
  16. NOVOLIN N [Concomitant]
     Active Substance: INSULIN HUMAN

REACTIONS (1)
  - Gastrooesophageal reflux disease [Not Recovered/Not Resolved]
